FAERS Safety Report 18001583 (Version 2)
Quarter: 2020Q4

REPORT INFORMATION
  Report Type: Spontaneous
  Country: US (occurrence: US)
  Receive Date: 20200709
  Receipt Date: 20201020
  Transmission Date: 20210113
  Serious: Yes (Other)
  Sender: FDA-Public Use
  Company Number: US-TEVA-2020-US-1800059

PATIENT
  Age: 67 Year
  Sex: Male

DRUGS (3)
  1. VALSARTAN/HYDROCHLOROTHIAZIDE MYLAN [Suspect]
     Active Substance: HYDROCHLOROTHIAZIDE\VALSARTAN
     Indication: HYPERTENSION
     Dosage: VALSARTAN 160/HYDROCHLOROTHIAZIDE 12.5 MG
     Route: 065
     Dates: start: 20121005, end: 20140327
  2. DIOVAN HCT [Suspect]
     Active Substance: HYDROCHLOROTHIAZIDE\VALSARTAN
     Indication: HYPERTENSION
     Dosage: VALSARTAN 160/HYDROCHLOROTHIAZIDE 12.5 MG
     Route: 065
     Dates: start: 2009, end: 2012
  3. VALSARTAN/HYDROCHLOROTHIAZIDE ACTAVIS [Suspect]
     Active Substance: HYDROCHLOROTHIAZIDE\VALSARTAN
     Indication: HYPERTENSION
     Route: 065
     Dates: start: 20140222, end: 20180711

REACTIONS (2)
  - Incontinence [Not Recovered/Not Resolved]
  - Bladder cancer [Recovered/Resolved]
